FAERS Safety Report 15319568 (Version 1)
Quarter: 2018Q3

REPORT INFORMATION
  Report Type: Spontaneous
  Country: GB (occurrence: GB)
  Receive Date: 20180827
  Receipt Date: 20180827
  Transmission Date: 20181010
  Serious: Yes (Other)
  Sender: FDA-Public Use
  Company Number: GB-TEVA-2018-GB-946952

PATIENT
  Age: 52 Year
  Sex: Female
  Weight: 64.41 kg

DRUGS (2)
  1. AMOXICILLIN. [Suspect]
     Active Substance: AMOXICILLIN
     Dosage: INTO ARM.
     Route: 042
  2. AMOXICILLIN. [Suspect]
     Active Substance: AMOXICILLIN
     Indication: INFECTED BITE
     Dosage: 2 DOSAGE FORMS DAILY; MORNING AND NIGHT.
     Route: 048
     Dates: start: 20180709, end: 20180712

REACTIONS (5)
  - Urticaria [Recovering/Resolving]
  - Malaise [Recovering/Resolving]
  - Rash erythematous [Recovering/Resolving]
  - Hypersensitivity [Unknown]
  - Pruritus [Recovering/Resolving]

NARRATIVE: CASE EVENT DATE: 20180713
